FAERS Safety Report 5188078-1 (Version None)
Quarter: 2006Q4

REPORT INFORMATION
  Report Type: 
  Country: None (occurrence: None)
  Receive Date: 20061214
  Receipt Date: 20061130
  Transmission Date: 20070319
  Serious: Yes (Life-Threatening, Hospitalization)
  Sender: FDA-Public Use
  Company Number: 2006SP007449

PATIENT
  Age: 62 Year
  Sex: Female
  Weight: 43 kg

DRUGS (6)
  1. PEG-INTRON [Suspect]
     Indication: HEPATITIS C
     Dosage: 60 MCG; QW; SC
     Route: 058
     Dates: start: 20051011, end: 20060530
  2. REBETOL [Suspect]
     Indication: HEPATITIS C
     Dosage: 400 MG; QD; PO; SEE IMAGE
     Route: 048
     Dates: start: 20051011, end: 20051031
  3. REBETOL [Suspect]
     Indication: HEPATITIS C
     Dosage: 400 MG; QD; PO; SEE IMAGE
     Route: 048
     Dates: start: 20051101, end: 20060301
  4. REBETOL [Suspect]
     Indication: HEPATITIS C
     Dosage: 400 MG; QD; PO; SEE IMAGE
     Route: 048
     Dates: start: 20051011, end: 20060530
  5. REBETOL [Suspect]
     Indication: HEPATITIS C
     Dosage: 400 MG; QD; PO; SEE IMAGE
     Route: 048
     Dates: start: 20060302, end: 20060606
  6. ALDACTONE [Concomitant]

REACTIONS (4)
  - ANOREXIA [None]
  - AORTIC ANEURYSM [None]
  - DEPRESSION [None]
  - RETROPERITONEAL ABSCESS [None]
